FAERS Safety Report 6990371-4 (Version None)
Quarter: 2010Q3

REPORT INFORMATION
  Report Type: 
  Country: None (occurrence: None)
  Receive Date: 20100916
  Receipt Date: 20100617
  Transmission Date: 20110219
  Serious: Yes (Hospitalization, Other)
  Sender: FDA-Public Use
  Company Number: US-PFIZER INC-2010022119

PATIENT
  Sex: Female
  Weight: 67.574 kg

DRUGS (17)
  1. LYRICA [Suspect]
     Indication: PAIN
     Dosage: 25 MG, 2X/DAY
     Route: 048
     Dates: start: 20070101
  2. LYRICA [Suspect]
     Indication: FIBROMYALGIA
     Dosage: 150 MG, 2X/DAY
     Dates: end: 20100401
  3. LYRICA [Suspect]
     Dosage: UNK
     Route: 048
     Dates: start: 20070101, end: 20100401
  4. THEOPHYLLINE [Concomitant]
     Indication: ASTHMA
     Dosage: UNK
  5. XANAX [Concomitant]
     Dosage: 2 MG, UNK
  6. ADVAIR DISKUS 100/50 [Concomitant]
     Dosage: UNK
  7. LEVOTHYROXINE [Concomitant]
     Dosage: UNK
  8. CALCIUM [Concomitant]
     Dosage: UNK
  9. FISH OIL [Concomitant]
     Dosage: UNK
  10. VITAMINS [Concomitant]
     Dosage: UNK
  11. METFORMIN [Concomitant]
     Dosage: 500 MG, UNK
  12. ASPIRIN [Concomitant]
     Dosage: 81 MG, UNK
  13. CIMETIDINE [Concomitant]
     Dosage: 400 MG, 1X/DAY
  14. PRAVASTATIN [Concomitant]
     Dosage: 40 MG, 1X/DAY
  15. IBUPROFEN [Concomitant]
     Dosage: UNK
  16. CYCLOBENZAPRINE [Concomitant]
     Dosage: UNK
  17. TYLENOL [Concomitant]
     Dosage: UNK

REACTIONS (23)
  - BALANCE DISORDER [None]
  - BLOOD CHOLESTEROL DECREASED [None]
  - BLOOD GLUCOSE DECREASED [None]
  - DEPRESSION [None]
  - EMOTIONAL DISORDER [None]
  - FALL [None]
  - FEELING ABNORMAL [None]
  - FIBROMYALGIA [None]
  - GENERAL PHYSICAL CONDITION [None]
  - HEPATIC FUNCTION ABNORMAL [None]
  - HYPOAESTHESIA [None]
  - MENTAL IMPAIRMENT [None]
  - NERVE INJURY [None]
  - OPTIC NERVE DISORDER [None]
  - PAIN [None]
  - PNEUMONIA [None]
  - PSYCHIATRIC SYMPTOM [None]
  - SOMNOLENCE [None]
  - SPEECH DISORDER [None]
  - UNDERWEIGHT [None]
  - VISUAL IMPAIRMENT [None]
  - WEIGHT DECREASED [None]
  - WEIGHT INCREASED [None]
